FAERS Safety Report 8577540 (Version 2)
Quarter: 2012Q4

REPORT INFORMATION
  Report Type: 
  Country: US (occurrence: US)
  Receive Date: 20120524
  Receipt Date: 20121120
  Transmission Date: 20130627
  Serious: No
  Sender: FDA-Public Use
  Company Number: US-ALLERGAN-1203943US

PATIENT
  Age: 62 Year
  Sex: Female

DRUGS (1)
  1. LASTACAFT [Suspect]
     Indication: ALLERGIC CONJUNCTIVITIS
     Dosage: 2 Gtt, qd
     Route: 047
     Dates: start: 20110408, end: 20120228

REACTIONS (2)
  - Photophobia [Unknown]
  - Conjunctival hyperaemia [Recovered/Resolved]
